FAERS Safety Report 7514843-9 (Version None)
Quarter: 2011Q2

REPORT INFORMATION
  Report Type: 
  Country: None (occurrence: None)
  Receive Date: 20110601
  Receipt Date: 20101221
  Transmission Date: 20111010
  Serious: No
  Sender: FDA-Public Use
  Company Number: US-NOVEN-ALL1-2010-06576

PATIENT
  Sex: Male
  Weight: 31.7 kg

DRUGS (3)
  1. DAYTRANA [Suspect]
     Dosage: 20 MG, 1XDAY:QD
     Route: 062
     Dates: start: 20100101
  2. DAYTRANA [Suspect]
     Indication: ATTENTION DEFICIT/HYPERACTIVITY DISORDER
     Dosage: 15 MG, 1X/DAY:QD
     Route: 062
     Dates: start: 20100901, end: 20100101
  3. UNSPECIFIED ALLERGY DROPS ALTERNATIVE FORM [Concomitant]
     Dosage: UNK

REACTIONS (3)
  - APPLICATION SITE PRURITUS [None]
  - PRODUCT QUALITY ISSUE [None]
  - APPLICATION SITE ERYTHEMA [None]
